FAERS Safety Report 8632708 (Version 2)
Quarter: 2012Q4

REPORT INFORMATION
  Report Type: 
  Country: US (occurrence: US)
  Receive Date: 20120625
  Receipt Date: 20121018
  Transmission Date: 20130627
  Serious: Yes (Hospitalization)
  Sender: FDA-Public Use
  Company Number: US-BAYER-2012-061847

PATIENT
  Age: 17 Year
  Sex: Female

DRUGS (5)
  1. YAZ [Suspect]
     Indication: OVARIAN CYST
     Dosage: UNK
     Dates: start: 20080428, end: 20080629
  2. YAZ [Suspect]
     Indication: DYSMENORRHOEA
  3. LEXAPRO [Concomitant]
  4. PRILOSEC [Concomitant]
  5. NAPROXEN [Concomitant]

REACTIONS (7)
  - Pulmonary embolism [None]
  - Injury [None]
  - Pain [None]
  - General physical health deterioration [None]
  - Emotional distress [None]
  - Anxiety [None]
  - Pain [None]
